FAERS Safety Report 15017542 (Version 3)
Quarter: 2018Q4

REPORT INFORMATION
  Report Type: Spontaneous
  Country: FR (occurrence: FR)
  Receive Date: 20180615
  Receipt Date: 20181002
  Transmission Date: 20190204
  Serious: Yes (Other)
  Sender: FDA-Public Use
  Company Number: FR-BEH-2018091549

PATIENT
  Age: 42 Year
  Sex: Female
  Weight: 90 kg

DRUGS (4)
  1. PRIVIGEN [Suspect]
     Active Substance: HUMAN IMMUNOGLOBULIN G
     Indication: ALLOIMMUNISATION
     Dosage: UNK
     Route: 065
     Dates: start: 201805
  2. PRIVIGEN [Suspect]
     Active Substance: HUMAN IMMUNOGLOBULIN G
     Indication: CONGENITAL THROMBOCYTE DISORDER
     Dosage: 90 G, QW
     Route: 042
     Dates: start: 20180528, end: 20180604
  3. PRIVIGEN [Suspect]
     Active Substance: HUMAN IMMUNOGLOBULIN G
     Indication: PROPHYLAXIS
     Dosage: UNK
     Route: 065
     Dates: start: 20180604
  4. PRIVIGEN [Suspect]
     Active Substance: HUMAN IMMUNOGLOBULIN G
     Indication: THROMBOCYTOPENIA
     Dosage: 90 G, QW, 40 G + 50 G OVER TWO DAYS
     Route: 065
     Dates: start: 20180611, end: 20180709

REACTIONS (4)
  - Hypertension [Recovered/Resolved]
  - Thrombosis [Unknown]
  - Vision blurred [Recovered/Resolved]
  - Eye oedema [Recovered/Resolved]
